FAERS Safety Report 10034158 (Version 1)
Quarter: 2014Q1

REPORT INFORMATION
  Report Type: Spontaneous
  Country: US (occurrence: None)
  Receive Date: 20140324
  Receipt Date: 20140324
  Transmission Date: 20141002
  Serious: Yes (Disabling)
  Sender: FDA-Public Use
  Company Number: None

PATIENT
  Age: 55 Year
  Sex: Female
  Weight: 90.72 kg

DRUGS (2)
  1. CIPRO [Suspect]
     Indication: SINUSITIS
     Dosage: ONE WEEK EACH TWICE DAILY TAKEN BY MOUTH
     Route: 048
  2. LEVAQUIN [Suspect]

REACTIONS (21)
  - Bone pain [None]
  - Arthralgia [None]
  - Pain of skin [None]
  - Myalgia [None]
  - Neuralgia [None]
  - Tendon pain [None]
  - Insomnia [None]
  - Neuropathy peripheral [None]
  - Asthenia [None]
  - Dysstasia [None]
  - Abasia [None]
  - Vitreous floaters [None]
  - Aphasia [None]
  - Thinking abnormal [None]
  - Dissociation [None]
  - Hallucination [None]
  - Hypertension [None]
  - Gastrooesophageal reflux disease [None]
  - Gastrointestinal disorder [None]
  - Blood magnesium decreased [None]
  - Vitamin D decreased [None]
